FAERS Safety Report 7301271 (Version 2)
Quarter: 2013Q3

REPORT INFORMATION
  Report Type: Spontaneous
  Country: None (occurrence: None)
  Receive Date: 20100204
  Receipt Date: 20130708
  Transmission Date: 20140515
  Serious: Yes (Hospitalization, Other)
  Sender: FDA-Public Use
  Company Number: AUR-APL-2010-00196

PATIENT
  Age: 38 Year
  Sex: Female

DRUGS (3)
  1. LAMOTRIGINE (LAMOTRIGINE) [Suspect]
     Indication: DEPRESSION
     Route: 048
  2. OLANZAPINE [Concomitant]
  3. CITALOPRAM (CITALOPRAM) [Concomitant]

REACTIONS (11)
  - Hypomania [None]
  - Depressed mood [None]
  - Anhedonia [None]
  - Hypersomnia [None]
  - Feelings of worthlessness [None]
  - Distractibility [None]
  - Suicidal ideation [None]
  - Asthenia [None]
  - Self esteem decreased [None]
  - Obsessive thoughts [None]
  - Fear [None]
